FAERS Safety Report 11711970 (Version 1)
Quarter: 2015Q4

REPORT INFORMATION
  Report Type: Spontaneous
  Country: US (occurrence: US)
  Receive Date: 20151104
  Receipt Date: 20151104
  Transmission Date: 20160304
  Serious: No
  Sender: FDA-Public Use
  Company Number: US-ELI_LILLY_AND_COMPANY-US201103004187

PATIENT
  Age: 56 Year
  Sex: Female

DRUGS (2)
  1. FORTEO [Suspect]
     Active Substance: TERIPARATIDE
     Indication: OSTEOPOROSIS
     Dosage: 20 UG, DAILY (1/D)
     Dates: start: 20110216
  2. FORTEO [Suspect]
     Active Substance: TERIPARATIDE
     Dosage: 20 UG, QD
     Dates: end: 20110313

REACTIONS (11)
  - Palpitations [Unknown]
  - Hypoaesthesia [Unknown]
  - Cardiac disorder [Not Recovered/Not Resolved]
  - Feeling abnormal [Unknown]
  - Heart rate increased [Recovering/Resolving]
  - Muscular weakness [Unknown]
  - Extrasystoles [Recovering/Resolving]
  - Asthma [Unknown]
  - Electrocardiogram pacemaker spike [Unknown]
  - Dizziness [Recovering/Resolving]
  - Sinus arrest [Unknown]

NARRATIVE: CASE EVENT DATE: 201102
